FAERS Safety Report 7028643-X (Version None)
Quarter: 2010Q4

REPORT INFORMATION
  Report Type: 
  Country: None (occurrence: None)
  Receive Date: 20101005
  Receipt Date: 20101001
  Transmission Date: 20110411
  Serious: Yes (Death)
  Sender: FDA-Public Use
  Company Number: US-ASTRAZENECA-2010SE46339

PATIENT
  Age: 79 Year
  Sex: Male

DRUGS (3)
  1. SEROQUEL XR [Suspect]
     Indication: BIPOLAR I DISORDER
     Route: 048
     Dates: start: 20100801
  2. LEXAPRO [Concomitant]
  3. KLONOPIN [Concomitant]

REACTIONS (1)
  - COMPLETED SUICIDE [None]
